FAERS Safety Report 5287829-5 (Version None)
Quarter: 2007Q2

REPORT INFORMATION
  Report Type: 
  Country: None (occurrence: None)
  Receive Date: 20070403
  Receipt Date: 20070403
  Transmission Date: 20071010
  Serious: Yes (Other)
  Sender: FDA-Public Use
  Company Number: None

PATIENT
  Sex: Female

DRUGS (1)
  1. METRONIDAZOLE [Suspect]
     Dosage: TOPICAL
     Route: 061

REACTIONS (4)
  - ERYTHEMA [None]
  - FEELING HOT [None]
  - RASH MACULAR [None]
  - SWELLING FACE [None]
